FAERS Safety Report 9651921 (Version 1)
Quarter: 2013Q4

REPORT INFORMATION
  Report Type: Spontaneous
  Country: US (occurrence: US)
  Receive Date: 20131029
  Receipt Date: 20131029
  Transmission Date: 20140711
  Serious: Yes (Other)
  Sender: FDA-Public Use
  Company Number: US-JNJFOC-20131012684

PATIENT
  Age: 73 Year
  Sex: Male
  Weight: 124.29 kg

DRUGS (1)
  1. ZYTIGA [Suspect]
     Indication: PROSTATE CANCER
     Route: 048

REACTIONS (4)
  - Oesophageal carcinoma [Recovered/Resolved]
  - Prostatic specific antigen increased [Unknown]
  - Oropharyngeal pain [Not Recovered/Not Resolved]
  - Drug administration error [Not Recovered/Not Resolved]
